FAERS Safety Report 8192305-6 (Version None)
Quarter: 2012Q1

REPORT INFORMATION
  Report Type: 
  Country: None (occurrence: None)
  Receive Date: 20120307
  Receipt Date: 20090831
  Transmission Date: 20120608
  Serious: Yes (Other)
  Sender: FDA-Public Use
  Company Number: PHHY2009CA070384

PATIENT

DRUGS (4)
  1. BETA BLOCKING AGENTS [Concomitant]
  2. ALISKIREN [Suspect]
     Dosage: 150 MG, UNK
  3. ANGIOTENSIN RECEPTOR BLOCKERS [Concomitant]
  4. GLUCOPHAGE [Concomitant]
     Dosage: 500 MG, BID

REACTIONS (3)
  - GLYCOSYLATED HAEMOGLOBIN INCREASED [None]
  - LOW DENSITY LIPOPROTEIN INCREASED [None]
  - DIABETES MELLITUS INADEQUATE CONTROL [None]
